FAERS Safety Report 9276134 (Version 1)
Quarter: 2012Q4

REPORT INFORMATION
  Report Type: Spontaneous
  Country: SZ (occurrence: None)
  Receive Date: 20121109
  Receipt Date: 20121109
  Transmission Date: 20130627
  Serious: Yes (Death)
  Sender: FDA-Public Use
  Company Number: 2012S000642

PATIENT
  Age: 54 Year
  Sex: Male

DRUGS (2)
  1. CUBICIN [Suspect]
     Indication: BACTERAEMIA
  2. VANCOMYCIN [Concomitant]

REACTIONS (1)
  - Bacterial sepsis [None]
